FAERS Safety Report 6684781-2 (Version None)
Quarter: 2010Q2

REPORT INFORMATION
  Report Type: 
  Country: None (occurrence: None)
  Receive Date: 20100416
  Receipt Date: 20100406
  Transmission Date: 20101027
  Serious: Yes (Hospitalization)
  Sender: FDA-Public Use
  Company Number: US-ELI_LILLY_AND_COMPANY-US201003001952

PATIENT
  Sex: Female
  Weight: 74.83 kg

DRUGS (3)
  1. BYETTA [Suspect]
     Indication: TYPE 2 DIABETES MELLITUS
     Dosage: 5 UG, 2/D
     Route: 058
     Dates: start: 20051001, end: 20050101
  2. BYETTA [Suspect]
     Dosage: 10 UG, 2/D
     Route: 058
     Dates: start: 20050101, end: 20081001
  3. GLUCOPHAGE XR [Concomitant]
     Indication: TYPE 2 DIABETES MELLITUS
     Dosage: UNK, 2/D
     Route: 048

REACTIONS (5)
  - GLYCOSYLATED HAEMOGLOBIN INCREASED [None]
  - HYSTERECTOMY [None]
  - NAUSEA [None]
  - PELVIC FLOOR REPAIR [None]
  - WEIGHT DECREASED [None]
